FAERS Safety Report 6035738-6 (Version None)
Quarter: 2009Q1

REPORT INFORMATION
  Report Type: 
  Country: None (occurrence: None)
  Receive Date: 20090112
  Receipt Date: 20090112
  Transmission Date: 20090719
  Serious: Yes (Hospitalization)
  Sender: FDA-Public Use
  Company Number: None

PATIENT
  Sex: Male
  Weight: 81.6475 kg

DRUGS (1)
  1. DOBUTAMINE UNKNOWN TO ME UNKNOWN TO ME [Suspect]
     Indication: CARDIAC STRESS TEST
     Dates: start: 20080929, end: 20080929

REACTIONS (2)
  - HEADACHE [None]
  - PAIN [None]
